FAERS Safety Report 10818041 (Version 2)
Quarter: 2015Q1

REPORT INFORMATION
  Report Type: Spontaneous
  Country: DE (occurrence: DE)
  Receive Date: 20150218
  Receipt Date: 20150304
  Transmission Date: 20150721
  Serious: Yes (Other)
  Sender: FDA-Public Use
  Company Number: DE-ABBVIE-15P-062-1348922-00

PATIENT
  Sex: Female

DRUGS (1)
  1. KREON 25000 [Suspect]
     Active Substance: PANCRELIPASE
     Indication: PRODUCT USED FOR UNKNOWN INDICATION
     Dosage: PER MEAL
     Route: 065

REACTIONS (4)
  - Food allergy [Not Recovered/Not Resolved]
  - Multiple allergies [Unknown]
  - Neoplasm [Not Recovered/Not Resolved]
  - Hypersensitivity [Not Recovered/Not Resolved]

NARRATIVE: CASE EVENT DATE: 2012
